FAERS Safety Report 7274050-4 (Version None)
Quarter: 2011Q1

REPORT INFORMATION
  Report Type: 
  Country: None (occurrence: None)
  Receive Date: 20110203
  Receipt Date: 20110125
  Transmission Date: 20110831
  Serious: Yes (Death, Life-Threatening, Hospitalization, Other)
  Sender: FDA-Public Use
  Company Number: JP-BRISTOL-MYERS SQUIBB COMPANY-14565055

PATIENT
  Age: 54 Year
  Sex: Male

DRUGS (24)
  1. ENDOXAN [Suspect]
     Indication: CHRONIC MYELOID LEUKAEMIA
     Route: 042
     Dates: start: 20080223, end: 20080223
  2. DECADRON [Suspect]
     Indication: CHRONIC MYELOID LEUKAEMIA
     Dosage: PO,04FEB09-17FEB09; 40 MG/DAY, IV, 06JUN09-11JUN09; 6-8 MG/DAY, PO, 06JUN09-29JUL09.
     Route: 042
     Dates: start: 20090606, end: 20090615
  3. IMMUNE GLOBULIN INTRAVENOUS (HUMAN) [Concomitant]
     Dosage: INJ
     Route: 042
     Dates: start: 20090323, end: 20090325
  4. VINCRISTINE SULFATE [Concomitant]
     Indication: CHRONIC MYELOID LEUKAEMIA
     Dosage: FORM: INJ.
     Route: 042
     Dates: start: 20090607, end: 20090709
  5. FILGRASTIM [Concomitant]
     Dosage: INJ
     Route: 058
     Dates: start: 20090304, end: 20090310
  6. LENDORMIN [Concomitant]
     Indication: INSOMNIA
     Dosage: TAB
     Route: 048
  7. PREDONINE [Concomitant]
     Indication: CHRONIC MYELOID LEUKAEMIA
     Dosage: TAB
     Route: 048
     Dates: start: 20090218, end: 20090603
  8. LEVOFLOXACIN [Concomitant]
     Route: 048
     Dates: start: 20090528
  9. VANCOMYCIN HCL [Concomitant]
     Dosage: INJ
     Route: 042
     Dates: start: 20090306, end: 20090310
  10. ACYCLOVIR [Concomitant]
     Dosage: INJ
     Route: 042
     Dates: start: 20090323, end: 20090329
  11. ALLOPURINOL [Concomitant]
     Indication: PROPHYLAXIS
     Dosage: TAB
     Route: 048
  12. CARVEDILOL [Concomitant]
     Indication: HYPERTENSION
     Dosage: TAB
     Route: 048
  13. MECOBALAMIN [Concomitant]
     Indication: PROPHYLAXIS
     Dosage: FORM: TAB.29-JUN-2009
     Route: 048
     Dates: end: 20090605
  14. ONCOVIN [Suspect]
     Indication: CHRONIC MYELOID LEUKAEMIA
     Dosage: THERAPY DATES: 02MAR09,09MAR09,16MAR09
     Route: 042
     Dates: start: 20090223, end: 20090316
  15. DAUNORUBICIN HCL [Suspect]
     Indication: CHRONIC MYELOID LEUKAEMIA
     Route: 042
     Dates: start: 20090223, end: 20090225
  16. LASIX [Suspect]
     Dosage: 1 DF-20-80 MG ON 25MAR09 DOSE INCREASED TO 60MG AND THEN TO 80MG THEN DECREASED TO 40MG
     Route: 048
     Dates: start: 20090117
  17. IMATINIB MESYLATE [Concomitant]
     Dosage: 28MAY02-05NOV07, 07OCT08-04FEB09
     Dates: start: 20020528
  18. SODIUM ALGINATE [Concomitant]
     Indication: GASTRITIS PROPHYLAXIS
     Dosage: FORM:SOL
     Route: 048
     Dates: end: 20090331
  19. NIFEDIPINE [Concomitant]
     Indication: HYPERTENSION
     Dosage: TABS
     Route: 048
  20. ZANTAC [Concomitant]
     Indication: PROPHYLAXIS AGAINST GASTROINTESTINAL ULCER
     Route: 048
  21. FIRSTCIN [Concomitant]
     Dosage: 6JUN-15JUN09: 30JUL-2AUG09
     Route: 042
     Dates: start: 20090619, end: 20090802
  22. SPRYCEL [Suspect]
     Indication: CHRONIC MYELOID LEUKAEMIA
     Dosage: 4FEB-3MAR,28D;16-26MAR(11D).INTER ON6MAR09,31MAR-16APR.07-26MAY,6JUN-30JUL09(54D):180MG/D
     Route: 048
     Dates: start: 20090204, end: 20090730
  23. MAXIPIME [Concomitant]
     Route: 042
     Dates: start: 20090304, end: 20090306
  24. FUROSEMIDE [Concomitant]
     Dosage: 1 DF = 40-80MG/DAY
     Route: 048
     Dates: start: 20090117

REACTIONS (17)
  - PNEUMOCYSTIS JIROVECI PNEUMONIA [None]
  - HYPOKALAEMIA [None]
  - WHITE BLOOD CELL COUNT DECREASED [None]
  - ANAEMIA [None]
  - NEUTROPHIL COUNT DECREASED [None]
  - SEPSIS [None]
  - PLATELET COUNT DECREASED [None]
  - DISSEMINATED INTRAVASCULAR COAGULATION [None]
  - PYREXIA [None]
  - PLEURAL EFFUSION [None]
  - PULMONARY CONGESTION [None]
  - CARDIAC FAILURE [None]
  - ASCITES [None]
  - ALANINE AMINOTRANSFERASE INCREASED [None]
  - HERPES ZOSTER [None]
  - INTERSTITIAL LUNG DISEASE [None]
  - PNEUMONIA [None]
